FAERS Safety Report 6305006-3 (Version None)
Quarter: 2009Q3

REPORT INFORMATION
  Report Type: 
  Country: None (occurrence: None)
  Receive Date: 20090811
  Receipt Date: 20090731
  Transmission Date: 20100115
  Serious: Yes (Hospitalization)
  Sender: FDA-Public Use
  Company Number: IN-ELI_LILLY_AND_COMPANY-IN200907007124

PATIENT
  Age: 56 Year
  Sex: Female

DRUGS (1)
  1. XIGRIS [Suspect]
     Indication: SEPSIS
     Dosage: UNK, UNK, 90 HOURS
     Route: 042
     Dates: start: 20090723, end: 20090728

REACTIONS (2)
  - CEREBRAL THROMBOSIS [None]
  - INTESTINAL GANGRENE [None]
